FAERS Safety Report 20854645 (Version 1)
Quarter: 2022Q2

REPORT INFORMATION
  Report Type: Spontaneous
  Country: CL (occurrence: CL)
  Receive Date: 20220520
  Receipt Date: 20220520
  Transmission Date: 20220721
  Serious: Yes (Other)
  Sender: FDA-Public Use
  Company Number: CL-TEVA-2022-CL-2037229

PATIENT
  Age: 29 Year
  Sex: Male
  Weight: 30 kg

DRUGS (1)
  1. IBUPROFEN [Suspect]
     Active Substance: IBUPROFEN
     Indication: Bone pain
     Dosage: 4000 MILLIGRAM DAILY;
     Route: 060
     Dates: start: 20210501

REACTIONS (1)
  - Vascular injury [Recovering/Resolving]

NARRATIVE: CASE EVENT DATE: 20220510
